FAERS Safety Report 5653170-1 (Version None)
Quarter: 2008Q1

REPORT INFORMATION
  Report Type: 
  Country: None (occurrence: None)
  Receive Date: 20080306
  Receipt Date: 20080228
  Transmission Date: 20080703
  Serious: Yes (Other)
  Sender: FDA-Public Use
  Company Number: GR-GENENTECH-256891

PATIENT
  Age: 68 Year
  Sex: Male

DRUGS (1)
  1. RAPTIVA [Suspect]
     Indication: PSORIASIS
     Dosage: UNK, UNK
     Route: 058
     Dates: start: 20060801, end: 20080201

REACTIONS (1)
  - PROSTATE CANCER [None]
